FAERS Safety Report 4737114-2 (Version None)
Quarter: 2005Q3

REPORT INFORMATION
  Report Type: 
  Country: None (occurrence: None)
  Receive Date: 20050728
  Receipt Date: 20050524
  Transmission Date: 20060218
  Serious: No
  Sender: FDA-Public Use
  Company Number: 200514591US

PATIENT
  Sex: Female

DRUGS (1)
  1. KETEK [Suspect]
     Indication: UPPER RESPIRATORY TRACT INFECTION
     Dosage: PO
     Route: 048
     Dates: start: 20050524, end: 20050524

REACTIONS (3)
  - READING DISORDER [None]
  - VISION BLURRED [None]
  - VISUAL DISTURBANCE [None]
